FAERS Safety Report 14858559 (Version 2)
Quarter: 2018Q3

REPORT INFORMATION
  Report Type: Spontaneous
  Country: US (occurrence: US)
  Receive Date: 20180508
  Receipt Date: 20180723
  Transmission Date: 20181010
  Serious: No
  Sender: FDA-Public Use
  Company Number: US-009507513-1804USA011853

PATIENT
  Age: 18 Year
  Sex: Female

DRUGS (6)
  1. ZIDOVUDINE. [Suspect]
     Active Substance: ZIDOVUDINE
  2. EFAVIRENZ (+) EMTRICITABINE (+) TENOFOVIR DISOPROXIL FUMARATE [Suspect]
     Active Substance: EFAVIRENZ\EMTRICITABINE\TENOFOVIR DISOPROXIL FUMARATE
     Dosage: 1 (UNIT NOT PROVIDED), QD
     Route: 048
     Dates: start: 201012
  3. LAMIVUDINE. [Suspect]
     Active Substance: LAMIVUDINE
     Dosage: 300 (UNIT NOT PROVIDED), QD
     Route: 048
     Dates: start: 201103
  4. ISENTRESS [Suspect]
     Active Substance: RALTEGRAVIR POTASSIUM
     Dosage: 800 (UNIT NOT PROVIDED), QD
     Route: 048
     Dates: start: 201103
  5. LOPINAVIR (+) RITONAVIR [Suspect]
     Active Substance: LOPINAVIR\RITONAVIR
     Dosage: 4 (UNIT NOT PROVIDED), QD
     Route: 048
     Dates: start: 201102
  6. EMTRICITABINE (+) TENOFOVIR DISOPROXIL FUMARATE [Suspect]
     Active Substance: EMTRICITABINE\TENOFOVIR DISOPROXIL
     Dosage: 1(UNIT NOT PROVIDED), QD
     Route: 048
     Dates: start: 201102

REACTIONS (2)
  - Maternal exposure during pregnancy [Recovered/Resolved]
  - No adverse event [Unknown]
